FAERS Safety Report 26028258 (Version 1)
Quarter: 2025Q4

REPORT INFORMATION
  Report Type: Spontaneous
  Country: US (occurrence: US)
  Receive Date: 20251111
  Receipt Date: 20251111
  Transmission Date: 20260118
  Serious: No
  Sender: Alora Pharma
  Company Number: US-ACELLA PHARMACEUTICALS, LLC-2025ALO02440

PATIENT
  Sex: Male
  Weight: 113.38 kg

DRUGS (2)
  1. CICLOPIROX [Suspect]
     Active Substance: CICLOPIROX
     Indication: Onychomycosis
     Route: 061
  2. UNSPECIFIED INGREDIENT [Concomitant]
     Active Substance: UNSPECIFIED INGREDIENT

REACTIONS (4)
  - Onychomycosis [Not Recovered/Not Resolved]
  - Incorrect product administration duration [Recovered/Resolved]
  - Product deposit [Not Recovered/Not Resolved]
  - Product adhesion issue [Recovered/Resolved]
